FAERS Safety Report 9059300 (Version 2)
Quarter: 2013Q4

REPORT INFORMATION
  Report Type: Report from Study
  Country: FR (occurrence: FR)
  Receive Date: 20130211
  Receipt Date: 20131223
  Transmission Date: 20140711
  Serious: Yes (Hospitalization)
  Sender: FDA-Public Use
  Company Number: FR-GLAXOSMITHKLINE-B0863130A

PATIENT
  Age: 60 Year
  Sex: Male
  Weight: 93 kg

DRUGS (11)
  1. OFATUMUMAB [Suspect]
     Indication: CHRONIC LYMPHOCYTIC LEUKAEMIA
     Route: 042
     Dates: start: 20120910
  2. METHYLPREDNISOLONE [Suspect]
     Indication: CHRONIC LYMPHOCYTIC LEUKAEMIA
     Route: 042
     Dates: start: 20120910
  3. BENDAMUSTINE [Suspect]
     Indication: CHRONIC LYMPHOCYTIC LEUKAEMIA
     Dosage: 140MG CYCLIC
     Route: 042
     Dates: start: 20120919
  4. ZELITREX [Concomitant]
  5. TIORFAN [Concomitant]
  6. PRIMPERAN [Concomitant]
  7. FOLINORAL [Concomitant]
  8. PAROXETINE [Concomitant]
  9. CALCIUM + VITAMIN D3 [Concomitant]
  10. BACTRIM FORT [Concomitant]
  11. TRAMADOL [Concomitant]

REACTIONS (2)
  - Atrial fibrillation [Recovered/Resolved]
  - Febrile bone marrow aplasia [Recovered/Resolved]
